FAERS Safety Report 8983276 (Version 2)
Quarter: 2013Q4

REPORT INFORMATION
  Report Type: Spontaneous
  Country: IT (occurrence: IT)
  Receive Date: 20121224
  Receipt Date: 20131212
  Transmission Date: 20140711
  Serious: Yes (Hospitalization)
  Sender: FDA-Public Use
  Company Number: PHHY2012IT117432

PATIENT
  Sex: Female

DRUGS (3)
  1. AREDIA [Suspect]
     Indication: METASTASES TO BONE
     Dosage: 90 MG, MONTHLY
     Route: 042
     Dates: start: 19991201, end: 20000401
  2. AREDIA [Suspect]
     Dosage: 90 MG, MONTHLY
     Route: 042
     Dates: start: 20010901, end: 20031201
  3. ZOMETA [Suspect]
     Indication: METASTASES TO BONE
     Dosage: 04 MG, MONTHLY
     Route: 042
     Dates: start: 20031201, end: 20060901

REACTIONS (1)
  - Osteonecrosis of jaw [Recovered/Resolved with Sequelae]
